FAERS Safety Report 7055963-5 (Version None)
Quarter: 2010Q4

REPORT INFORMATION
  Report Type: 
  Country: None (occurrence: None)
  Receive Date: 20101021
  Receipt Date: 20101013
  Transmission Date: 20110411
  Serious: Yes (Other)
  Sender: FDA-Public Use
  Company Number: A0872747A

PATIENT
  Age: 67 Year
  Sex: Male
  Weight: 76.8 kg

DRUGS (2)
  1. AVANDIA [Suspect]
     Dosage: 2MG PER DAY
     Route: 048
     Dates: start: 20090101, end: 20100501
  2. NO CONCURRENT MEDICATION [Concomitant]

REACTIONS (11)
  - AORTIC CALCIFICATION [None]
  - CAROTID ARTERIOSCLEROSIS [None]
  - CHEST DISCOMFORT [None]
  - CHEST PAIN [None]
  - COUGH [None]
  - ILL-DEFINED DISORDER [None]
  - NASAL CONGESTION [None]
  - PLEURAL EFFUSION [None]
  - PLEURAL FIBROSIS [None]
  - SPINAL OSTEOARTHRITIS [None]
  - WHEEZING [None]
